FAERS Safety Report 15289169 (Version 1)
Quarter: 2018Q4

REPORT INFORMATION
  Report Type: Spontaneous
  Country: CH (occurrence: CH)
  Receive Date: 20180817
  Receipt Date: 20180817
  Transmission Date: 20190204
  Serious: Yes (Life-Threatening, Hospitalization)
  Sender: FDA-Public Use
  Company Number: CH-SCIEGEN PHARMACEUTICALS INC-2018SCILIT00554

PATIENT
  Age: 48 Year
  Sex: Female

DRUGS (9)
  1. PARACETAMOL [Suspect]
     Active Substance: ACETAMINOPHEN
     Indication: PRODUCT USED FOR UNKNOWN INDICATION
     Dosage: 65 G, UNK
     Route: 065
     Dates: start: 2016
  2. QUETIAPINE. [Suspect]
     Active Substance: QUETIAPINE
     Dosage: 1 G OF IMMEDIATE RELEASE FORMULATION
     Route: 065
     Dates: start: 2017
  3. QUETIAPINE. [Suspect]
     Active Substance: QUETIAPINE
     Indication: PRODUCT USED FOR UNKNOWN INDICATION
     Dosage: 1 G OF IMMEDIATE RELEASE FORMULATION
     Route: 065
     Dates: start: 2016
  4. PARACETAMOL [Suspect]
     Active Substance: ACETAMINOPHEN
     Dosage: 65 G, UNK
     Route: 065
     Dates: start: 2017
  5. PIPAMPERONE [Suspect]
     Active Substance: PIPAMPERONE
     Indication: PRODUCT USED FOR UNKNOWN INDICATION
     Dosage: UNK
     Route: 065
  6. ALCOHOL. [Suspect]
     Active Substance: ALCOHOL
     Indication: PRODUCT USED FOR UNKNOWN INDICATION
     Dosage: UNKNOWN
     Route: 065
  7. DICLOFENAC [Suspect]
     Active Substance: DICLOFENAC
     Indication: PRODUCT USED FOR UNKNOWN INDICATION
     Dosage: 1.5 G, UNK
     Route: 065
     Dates: start: 2017
  8. QUETIAPINE. [Suspect]
     Active Substance: QUETIAPINE
     Dosage: 2.5 G OF EXTENDED RELEASE FORMULATION
     Route: 065
     Dates: start: 2016
  9. TRAMADOL ER [Suspect]
     Active Substance: TRAMADOL HYDROCHLORIDE
     Indication: PRODUCT USED FOR UNKNOWN INDICATION
     Dosage: 800 MG, UNK
     Route: 065
     Dates: start: 2017

REACTIONS (8)
  - Toxicity to various agents [Recovered/Resolved]
  - Hypotonia [Recovered/Resolved]
  - Hepatotoxicity [Recovered/Resolved]
  - Hypotension [Recovered/Resolved]
  - Bezoar [Recovered/Resolved]
  - Intentional overdose [Recovered/Resolved]
  - Somnolence [Recovered/Resolved]
  - Coma [Recovered/Resolved]
